FAERS Safety Report 4998367-9 (Version None)
Quarter: 2006Q2

REPORT INFORMATION
  Report Type: 
  Country: None (occurrence: None)
  Receive Date: 20060508
  Receipt Date: 20060426
  Transmission Date: 20061013
  Serious: Yes (Hospitalization)
  Sender: FDA-Public Use
  Company Number: 2006057293

PATIENT
  Sex: Female

DRUGS (4)
  1. PHENYTOIN [Suspect]
     Indication: CONVULSION
     Dosage: 9 MG (1 D), UNKNOWN
     Route: 065
  2. AMOXICILLIN TRIHYDRATE/CLAVULANATE POTASSIUM (CLAVULANATE POTASSIUM, A [Suspect]
     Indication: ILL-DEFINED DISORDER
     Dosage: UNKNOWN
     Route: 065
     Dates: start: 19960101
  3. LAMOTRIGINE [Suspect]
     Indication: CONVULSION
     Dosage: 150 MG (75 MG, 2 IN 1 D), ORAL
     Route: 048
  4. PHENOXYMETHYL PENICILLIN [Suspect]
     Indication: ILL-DEFINED DISORDER
     Dosage: UNKNOWN
     Route: 065

REACTIONS (28)
  - ABNORMAL FAECES [None]
  - CANDIDIASIS [None]
  - CONVULSION [None]
  - DIARRHOEA [None]
  - DRUG INEFFECTIVE [None]
  - DYSPEPSIA [None]
  - EAR INFECTION [None]
  - EPISTAXIS [None]
  - GASTROINTESTINAL DISORDER [None]
  - GENERAL NUTRITION DISORDER [None]
  - GENERAL PHYSICAL HEALTH DETERIORATION [None]
  - IMPAIRED HEALING [None]
  - INADEQUATE DIET [None]
  - INFECTION [None]
  - INFREQUENT BOWEL MOVEMENTS [None]
  - LACTOSE INTOLERANCE [None]
  - MALAISE [None]
  - MEDICAL DIET [None]
  - PHARYNGEAL OEDEMA [None]
  - PHARYNGITIS [None]
  - RASH [None]
  - RASH GENERALISED [None]
  - RHINITIS [None]
  - STOOL ANALYSIS ABNORMAL [None]
  - UPPER LIMB FRACTURE [None]
  - UPPER RESPIRATORY TRACT INFECTION [None]
  - URINARY RETENTION [None]
  - VOMITING PROJECTILE [None]
